FAERS Safety Report 16861739 (Version 1)
Quarter: 2019Q3

REPORT INFORMATION
  Report Type: Spontaneous
  Country: US (occurrence: US)
  Receive Date: 20190927
  Receipt Date: 20190927
  Transmission Date: 20191005
  Serious: No
  Sender: FDA-Public Use
  Company Number: US-BAYER-2019-175972

PATIENT
  Age: 66 Year
  Sex: Male
  Weight: 88 kg

DRUGS (2)
  1. OPIUM ALKALOIDS TOTAL [Concomitant]
     Active Substance: OPIUM
  2. MIRALAX [Suspect]
     Active Substance: POLYETHYLENE GLYCOL 3350
     Indication: LAXATIVE SUPPORTIVE CARE
     Route: 048

REACTIONS (3)
  - Off label use [Unknown]
  - Product use in unapproved indication [Unknown]
  - Therapeutic product effect variable [Unknown]
